FAERS Safety Report 13423324 (Version 2)
Quarter: 2017Q2

REPORT INFORMATION
  Report Type: Spontaneous
  Country: US (occurrence: US)
  Receive Date: 20170410
  Receipt Date: 20170420
  Transmission Date: 20170830
  Serious: No
  Sender: FDA-Public Use
  Company Number: US-MISSION PHARMACAL COMPANY-1065210

PATIENT
  Age: 13 Year
  Sex: Male

DRUGS (1)
  1. THIOLA [Suspect]
     Active Substance: TIOPRONIN
     Indication: AMINO ACID METABOLISM DISORDER
     Route: 065
     Dates: start: 20170317

REACTIONS (4)
  - Drug ineffective [Unknown]
  - Ear infection [None]
  - Oropharyngeal pain [Unknown]
  - Hypersensitivity [None]
